FAERS Safety Report 14669103 (Version 2)
Quarter: 2018Q2

REPORT INFORMATION
  Report Type: Spontaneous
  Country: US (occurrence: US)
  Receive Date: 20180322
  Receipt Date: 20180404
  Transmission Date: 20180711
  Serious: Yes (Other)
  Sender: FDA-Public Use
  Company Number: US-PFIZER INC-2018112923

PATIENT
  Age: 62 Year
  Sex: Female

DRUGS (1)
  1. RAMIPRIL. [Suspect]
     Active Substance: RAMIPRIL
     Dosage: UNK
     Route: 048

REACTIONS (6)
  - Heart valve incompetence [Unknown]
  - Atrioventricular block [Unknown]
  - Peripheral swelling [Unknown]
  - Shock [Unknown]
  - Diabetes mellitus [Unknown]
  - Cardiac disorder [Unknown]
